FAERS Safety Report 11855184 (Version 1)
Quarter: 2015Q4

REPORT INFORMATION
  Report Type: Spontaneous
  Country: DK (occurrence: DK)
  Receive Date: 20151221
  Receipt Date: 20151221
  Transmission Date: 20160305
  Serious: Yes (Life-Threatening, Hospitalization)
  Sender: FDA-Public Use
  Company Number: DK-WATSON-2015-13832

PATIENT
  Age: 42 Year
  Sex: Male

DRUGS (1)
  1. ANTABUSE [Suspect]
     Active Substance: DISULFIRAM
     Indication: ALCOHOL USE
     Dosage: 400 MG, 2/WEEK
     Route: 048
     Dates: start: 20140122

REACTIONS (12)
  - Nausea [Recovered/Resolved]
  - Weight decreased [Recovered/Resolved]
  - Chromaturia [Recovered/Resolved]
  - Yellow skin [Recovered/Resolved]
  - Life support [Recovered/Resolved]
  - Hepatic necrosis [Recovered/Resolved]
  - Hepatic failure [Recovered/Resolved]
  - Dialysis [Recovered/Resolved]
  - Abdominal pain [Recovered/Resolved]
  - Cerebral disorder [Recovered/Resolved]
  - Liver transplant [Recovered/Resolved]
  - Decreased appetite [Recovered/Resolved]

NARRATIVE: CASE EVENT DATE: 2014
